FAERS Safety Report 8955450 (Version 3)
Quarter: 2013Q2

REPORT INFORMATION
  Report Type: Spontaneous
  Country: JP (occurrence: JP)
  Receive Date: 20121207
  Receipt Date: 20130501
  Transmission Date: 20140414
  Serious: Yes (Hospitalization)
  Sender: FDA-Public Use
  Company Number: JP-ROCHE-1164424

PATIENT
  Age: 68 Year
  Sex: Male
  Weight: 58 kg

DRUGS (6)
  1. PEGASYS [Suspect]
     Indication: CHRONIC HEPATITIS C
     Route: 058
     Dates: start: 20091019, end: 20091116
  2. URSO [Concomitant]
     Indication: CHRONIC HEPATITIS C
     Route: 048
  3. DEPAS [Concomitant]
     Indication: INSOMNIA
     Route: 048
  4. DEPAS [Concomitant]
     Indication: DEPRESSIVE SYMPTOM
     Route: 048
  5. BLOPRESS [Concomitant]
     Indication: HYPERTENSION
     Route: 048
  6. MAINTATE [Concomitant]
     Indication: HYPERTENSION
     Route: 048

REACTIONS (1)
  - Autoimmune hepatitis [Recovering/Resolving]
